FAERS Safety Report 4807783-7 (Version None)
Quarter: 2005Q4

REPORT INFORMATION
  Report Type: 
  Country: None (occurrence: None)
  Receive Date: 20051020
  Receipt Date: 20051007
  Transmission Date: 20060501
  Serious: Yes (Hospitalization)
  Sender: FDA-Public Use
  Company Number: 2004-05-1994

PATIENT
  Age: 58 Year
  Sex: Male
  Weight: 65 kg

DRUGS (5)
  1. REBETOL [Suspect]
     Indication: HEPATITIS C
     Dosage: 800 MG QD ORAL
     Route: 048
     Dates: start: 20020430, end: 20021011
  2. INTRON A I(INTERFERON ALFA-2B RECOMBINANT) INJECTABLE [Suspect]
     Indication: HEPATITIS C
     Dosage: SEE IMAGE
     Route: 030
     Dates: start: 20020430, end: 20020512
  3. INTRON A I(INTERFERON ALFA-2B RECOMBINANT) INJECTABLE [Suspect]
     Indication: HEPATITIS C
     Dosage: SEE IMAGE
     Route: 030
     Dates: start: 20020513, end: 20020526
  4. INTRON A I(INTERFERON ALFA-2B RECOMBINANT) INJECTABLE [Suspect]
     Indication: HEPATITIS C
     Dosage: SEE IMAGE
     Route: 030
     Dates: start: 20020430, end: 20021011
  5. INTRON A I(INTERFERON ALFA-2B RECOMBINANT) INJECTABLE [Suspect]
     Indication: HEPATITIS C
     Dosage: SEE IMAGE
     Route: 030
     Dates: start: 20020527, end: 20021011

REACTIONS (6)
  - AUTOIMMUNE THYROIDITIS [None]
  - FATIGUE [None]
  - HYPOTHYROIDISM [None]
  - MUSCLE ATROPHY [None]
  - MYOPATHY ENDOCRINE [None]
  - SWELLING [None]
